FAERS Safety Report 20884787 (Version 10)
Quarter: 2023Q4

REPORT INFORMATION
  Report Type: Other
  Country: JP (occurrence: JP)
  Receive Date: 20220527
  Receipt Date: 20231218
  Transmission Date: 20240109
  Serious: Yes (Hospitalization, Other)
  Sender: FDA-Public Use
  Company Number: JP-CHUGAI-2022015049

PATIENT
  Age: 63 Year
  Sex: Female
  Weight: 51.7 kg

DRUGS (3)
  1. ENTRECTINIB [Suspect]
     Active Substance: ENTRECTINIB
     Indication: Ovarian cancer
     Route: 048
     Dates: start: 20220406, end: 20220414
  2. ENTRECTINIB [Suspect]
     Active Substance: ENTRECTINIB
     Route: 048
     Dates: start: 20220502, end: 20220512
  3. ENTRECTINIB [Suspect]
     Active Substance: ENTRECTINIB
     Route: 048
     Dates: start: 20220523, end: 20220711

REACTIONS (12)
  - Dizziness [Recovered/Resolved]
  - Dizziness [Recovering/Resolving]
  - Dysarthria [Recovered/Resolved with Sequelae]
  - Altered state of consciousness [Recovered/Resolved]
  - Cognitive disorder [Recovering/Resolving]
  - Amnesia [Recovering/Resolving]
  - Memory impairment [Recovering/Resolving]
  - Somnolence [Recovering/Resolving]
  - Ataxia [Recovering/Resolving]
  - Gait disturbance [Recovering/Resolving]
  - Cardiac failure [Not Recovered/Not Resolved]
  - Blood creatinine increased [Unknown]

NARRATIVE: CASE EVENT DATE: 20220410
